FAERS Safety Report 24444091 (Version 2)
Quarter: 2024Q4

REPORT INFORMATION
  Report Type: Report from Study
  Country: DE (occurrence: DE)
  Receive Date: 20241016
  Receipt Date: 20241017
  Transmission Date: 20250115
  Serious: No
  Sender: ROCHE
  Company Number: DE-ROCHE-2318510

PATIENT
  Age: 55 Year
  Sex: Male

DRUGS (7)
  1. MABTHERA [Suspect]
     Active Substance: RITUXIMAB
     Indication: Relapsing-remitting multiple sclerosis
     Dosage: 100 MG PER KG BODY WEIGHT?183 DAYS
     Route: 041
     Dates: start: 20190416
  2. MABTHERA [Suspect]
     Active Substance: RITUXIMAB
     Dosage: 100 MG PER KG BODY WEIGHT
     Route: 041
     Dates: start: 20191016
  3. MABTHERA [Suspect]
     Active Substance: RITUXIMAB
     Dosage: 100 MG PER KG BODY WEIGHT
     Route: 041
     Dates: start: 20180319
  4. MABTHERA [Suspect]
     Active Substance: RITUXIMAB
     Dosage: 100 MG PER KG BODY WEIGHT
     Route: 041
     Dates: start: 20200630
  5. MABTHERA [Suspect]
     Active Substance: RITUXIMAB
     Dosage: 100 MG PER KG BODY WEIGHT
     Route: 041
     Dates: start: 20201229
  6. MABTHERA [Suspect]
     Active Substance: RITUXIMAB
     Dosage: 100 MG PER KG BODY WEIGHT
     Route: 041
     Dates: start: 20210730
  7. METFORMIN [Concomitant]
     Active Substance: METFORMIN HYDROCHLORIDE
     Dosage: METFORMIN 850 MG (3X DAILY)

REACTIONS (6)
  - Off label use [Unknown]
  - Injection site discomfort [Recovered/Resolved]
  - Injection site pain [Recovered/Resolved]
  - Pain in extremity [Not Recovered/Not Resolved]
  - COVID-19 [Recovered/Resolved]
  - Anxiety [Recovered/Resolved]

NARRATIVE: CASE EVENT DATE: 20190416
